FAERS Safety Report 6612887-2 (Version None)
Quarter: 2010Q1

REPORT INFORMATION
  Report Type: 
  Country: None (occurrence: None)
  Receive Date: 20100303
  Receipt Date: 20100222
  Transmission Date: 20100710
  Serious: Yes (Other)
  Sender: FDA-Public Use
  Company Number: US-AMGEN-US330008

PATIENT
  Sex: Female
  Weight: 72.2 kg

DRUGS (8)
  1. NPLATE [Suspect]
     Indication: IDIOPATHIC THROMBOCYTOPENIC PURPURA
     Route: 058
     Dates: start: 20090121, end: 20090520
  2. PREDNISONE TAB [Concomitant]
     Dates: start: 20090115, end: 20090122
  3. XANAX [Concomitant]
  4. VITAMIN C [Concomitant]
  5. POTASSIUM CHLORIDE [Concomitant]
  6. COENZYME Q10 [Concomitant]
  7. RITUXAN [Concomitant]
  8. VINCRISTINE [Concomitant]

REACTIONS (2)
  - INSOMNIA [None]
  - PLATELET COUNT DECREASED [None]
